FAERS Safety Report 23746542 (Version 1)
Quarter: 2024Q2

REPORT INFORMATION
  Report Type: Spontaneous
  Country: US (occurrence: US)
  Receive Date: 20240416
  Receipt Date: 20240416
  Transmission Date: 20240717
  Serious: Yes (Other)
  Sender: FDA-Public Use
  Company Number: US-BRISTOL-MYERS SQUIBB COMPANY-2024-057408

PATIENT
  Age: 66 Year
  Sex: Male

DRUGS (1)
  1. POMALYST [Suspect]
     Active Substance: POMALIDOMIDE
     Indication: Plasma cell myeloma refractory
     Dosage: 1 TIME A DAY FOR 21 DAYS ON AND 7 DAYS OF
     Route: 048
     Dates: start: 202403

REACTIONS (3)
  - Diarrhoea [Unknown]
  - Constipation [Unknown]
  - Blood iron decreased [Unknown]
